FAERS Safety Report 7674980-5 (Version None)
Quarter: 2011Q3

REPORT INFORMATION
  Report Type: 
  Country: None (occurrence: None)
  Receive Date: 20110810
  Receipt Date: 20110801
  Transmission Date: 20111222
  Serious: Yes (Other)
  Sender: FDA-Public Use
  Company Number: PHHY2011US56652

PATIENT
  Sex: Male
  Weight: 114.74 kg

DRUGS (6)
  1. NEURONTIN [Concomitant]
     Dosage: 300 MG, UNK
  2. PREVACID [Concomitant]
     Dosage: 15 MG, UNK
  3. SAW PALMETTO [Concomitant]
     Dosage: 160 MG, UNK
  4. SOLU-MEDROL [Concomitant]
     Dosage: 40 MG, UNK
  5. DETROL [Concomitant]
     Dosage: 2 MG, UNK
  6. GILENYA [Suspect]
     Indication: MULTIPLE SCLEROSIS
     Dosage: 0.5 MG, QD
     Route: 048
     Dates: start: 20110513, end: 20110722

REACTIONS (5)
  - CYSTITIS [None]
  - PROSTATITIS [None]
  - DIARRHOEA [None]
  - INFLUENZA LIKE ILLNESS [None]
  - CHROMATURIA [None]
